FAERS Safety Report 13026937 (Version 1)
Quarter: 2016Q4

REPORT INFORMATION
  Report Type: Spontaneous
  Country: CN (occurrence: CN)
  Receive Date: 20161214
  Receipt Date: 20161214
  Transmission Date: 20170207
  Serious: Yes (Other)
  Sender: FDA-Public Use
  Company Number: CN-PFIZER INC-2016571875

PATIENT
  Age: 37 Year
  Sex: Female
  Weight: 60.5 kg

DRUGS (1)
  1. ZAVEDOS [Suspect]
     Active Substance: IDARUBICIN
     Indication: ACUTE LEUKAEMIA
     Dosage: 5 MG, 1X/DAY
     Route: 042
     Dates: start: 20161015, end: 20161017

REACTIONS (4)
  - Pallor [Recovering/Resolving]
  - Blood pressure decreased [Recovering/Resolving]
  - Chest pain [Recovering/Resolving]
  - Dizziness [Recovering/Resolving]

NARRATIVE: CASE EVENT DATE: 20161016
